FAERS Safety Report 4951597-4 (Version None)
Quarter: 2006Q1

REPORT INFORMATION
  Report Type: 
  Country: None (occurrence: None)
  Receive Date: 20060317
  Receipt Date: 20060307
  Transmission Date: 20060701
  Serious: Yes (Hospitalization)
  Sender: FDA-Public Use
  Company Number: 163-C5013-06030255

PATIENT
  Age: 70 Year
  Sex: Male
  Weight: 67.586 kg

DRUGS (3)
  1. LENALIDOMIDE [Suspect]
     Indication: MULTIPLE MYELOMA
     Dosage: 25 MG, QD FOR 21D, ORAL; QD (CYCLE 4), ORAL
     Route: 048
     Dates: start: 20051110, end: 20060227
  2. LENALIDOMIDE [Suspect]
     Indication: MULTIPLE MYELOMA
     Dosage: 25 MG, QD FOR 21D, ORAL; QD (CYCLE 4), ORAL
     Route: 048
     Dates: start: 20060207, end: 20060227
  3. DEXAMETHASONE [Suspect]
     Indication: MULTIPLE MYELOMA
     Dosage: ORAL
     Route: 048
     Dates: start: 20051110, end: 20060227

REACTIONS (3)
  - BLOOD CREATININE INCREASED [None]
  - ERYTHEMA MULTIFORME [None]
  - RASH [None]
